FAERS Safety Report 23548426 (Version 1)
Quarter: 2024Q1

REPORT INFORMATION
  Report Type: Spontaneous
  Country: US (occurrence: None)
  Receive Date: 20240219
  Receipt Date: 20240219
  Transmission Date: 20240410
  Serious: Yes (Disabling, Other)
  Sender: FDA-Public Use
  Company Number: None

PATIENT
  Age: 52 Year
  Sex: Female
  Weight: 52.2 kg

DRUGS (13)
  1. DUPIXENT [Suspect]
     Active Substance: DUPILUMAB
     Indication: Asthma
     Dosage: OTHER QUANTITY : 1 INJECTION(S);?FREQUENCY : EVERY OTHER WEEK;?
     Route: 058
     Dates: start: 20231208, end: 20240216
  2. PROVENTIL [Concomitant]
     Active Substance: ALBUTEROL
  3. TRELEGY ELLIPTA [Concomitant]
     Active Substance: FLUTICASONE FUROATE\UMECLIDINIUM BROMIDE\VILANTEROL TRIFENATATE
  4. IPRAT-ALBUT [Concomitant]
  5. MONTELUKAST [Concomitant]
     Active Substance: MONTELUKAST SODIUM
  6. LAMOTRIGINE [Concomitant]
     Active Substance: LAMOTRIGINE
  7. CLONAZEPAM [Concomitant]
     Active Substance: CLONAZEPAM
  8. VITAMIN D2 [Concomitant]
     Active Substance: ERGOCALCIFEROL
  9. VITAMIN B12 [Concomitant]
     Active Substance: CYANOCOBALAMIN
  10. Muro 128? [Concomitant]
  11. Refresh Celluvisc, [Concomitant]
  12. REFRESH RELIEVA PF [Concomitant]
     Active Substance: CARBOXYMETHYLCELLULOSE SODIUM\GLYCERIN
  13. Systane Nighttime Eye Lubricant Ointment [Concomitant]

REACTIONS (4)
  - Keratitis [None]
  - Corneal laceration [None]
  - Impaired healing [None]
  - Dry eye [None]

NARRATIVE: CASE EVENT DATE: 20240202
